FAERS Safety Report 15057117 (Version 1)
Quarter: 2018Q2

REPORT INFORMATION
  Report Type: Spontaneous
  Country: JP (occurrence: JP)
  Receive Date: 20180624
  Receipt Date: 20180624
  Transmission Date: 20180711
  Serious: Yes (Hospitalization, Other)
  Sender: FDA-Public Use
  Company Number: JP-BIOVERATIV-2016BI00228458

PATIENT
  Age: 1 Year
  Sex: Male
  Weight: 9.4 kg

DRUGS (44)
  1. ATARAX-P [Concomitant]
     Active Substance: HYDROXYZINE HYDROCHLORIDE
     Route: 042
     Dates: start: 20160421, end: 20160622
  2. ATARAX-P [Concomitant]
     Active Substance: HYDROXYZINE HYDROCHLORIDE
     Dosage: SINGLE
     Route: 042
     Dates: start: 20160825, end: 20160825
  3. NOVOSEVEN [Concomitant]
     Active Substance: COAGULATION FACTOR VIIA RECOMBINANT HUMAN
     Indication: FACTOR IX DEFICIENCY
     Dosage: ADDITIONAL DOSE
     Route: 042
     Dates: start: 20160523, end: 20160810
  4. SOL-MELCORT [Concomitant]
     Active Substance: METHYLPREDNISOLONE SODIUM SUCCINATE
     Route: 042
     Dates: start: 20160506, end: 20160506
  5. PIPERACILLIN SODIUM [Concomitant]
     Active Substance: PIPERACILLIN SODIUM
     Route: 048
     Dates: start: 20160524, end: 20160528
  6. DECADRON [Concomitant]
     Active Substance: DEXAMETHASONE
     Route: 048
     Dates: start: 20160518, end: 20160518
  7. DECADRON [Concomitant]
     Active Substance: DEXAMETHASONE
     Route: 048
     Dates: start: 20160624, end: 20160624
  8. NOVOSEVEN [Concomitant]
     Active Substance: COAGULATION FACTOR VIIA RECOMBINANT HUMAN
     Dosage: DOSE AT BLEEING
     Route: 042
     Dates: start: 20160906, end: 20161017
  9. SOL-MELCORT [Concomitant]
     Active Substance: METHYLPREDNISOLONE SODIUM SUCCINATE
     Route: 042
     Dates: start: 20160530, end: 20160603
  10. DOMPERIDONE [Concomitant]
     Active Substance: DOMPERIDONE
     Route: 065
     Dates: start: 20160511, end: 20160516
  11. CARBOCISTEINE [Concomitant]
     Active Substance: CARBOCYSTEINE
     Route: 048
     Dates: start: 20160523
  12. HYDROXYZINE PAMOATE. [Concomitant]
     Active Substance: HYDROXYZINE PAMOATE
     Dosage: PRN
     Route: 048
     Dates: start: 20160624, end: 20160810
  13. ALPROLIX [Suspect]
     Active Substance: EFTRENONACOG ALFA
     Indication: IMMUNE TOLERANCE INDUCTION
     Dosage: ITI
     Route: 042
     Dates: start: 20160421, end: 20160512
  14. ATARAX-P [Concomitant]
     Active Substance: HYDROXYZINE HYDROCHLORIDE
     Route: 042
     Dates: start: 20160624, end: 20170727
  15. DOMPERIDONE [Concomitant]
     Active Substance: DOMPERIDONE
     Route: 065
     Dates: start: 20160613, end: 20160615
  16. ASVERIN (TIPEPIDINE HIBENZATE) [Concomitant]
     Active Substance: TIPEPIDINE HIBENZATE
     Route: 065
     Dates: start: 20160523
  17. AMBROXOL HYDROCHLORIDE [Concomitant]
     Active Substance: AMBROXOL HYDROCHLORIDE
     Route: 048
     Dates: start: 20160516
  18. PREDONINE [Concomitant]
     Active Substance: PREDNISOLONE
     Indication: PYREXIA
     Route: 065
     Dates: start: 20160708, end: 20160708
  19. ALPROLIX [Suspect]
     Active Substance: EFTRENONACOG ALFA
     Indication: FACTOR IX DEFICIENCY
     Dosage: ROUTINE TREATMENT
     Route: 042
     Dates: start: 20160113, end: 20160415
  20. ALPROLIX [Suspect]
     Active Substance: EFTRENONACOG ALFA
     Dosage: ITI
     Route: 042
     Dates: start: 20160516, end: 20160822
  21. NOVOSEVEN [Concomitant]
     Active Substance: COAGULATION FACTOR VIIA RECOMBINANT HUMAN
     Dosage: DOSE AT BLEEING
     Route: 042
     Dates: start: 20161021, end: 20161027
  22. SOL-MELCORT [Concomitant]
     Active Substance: METHYLPREDNISOLONE SODIUM SUCCINATE
     Route: 042
     Dates: start: 20170523, end: 20170525
  23. SOL-MELCORT [Concomitant]
     Active Substance: METHYLPREDNISOLONE SODIUM SUCCINATE
     Route: 042
     Dates: start: 20170526, end: 20170528
  24. ACETAMINOPHEN. [Concomitant]
     Active Substance: ACETAMINOPHEN
     Route: 048
     Dates: start: 20160516
  25. PERIACTIN [Concomitant]
     Active Substance: CYPROHEPTADINE HYDROCHLORIDE
     Route: 065
     Dates: start: 20160523
  26. INCREMIN [Concomitant]
     Active Substance: FERRIC PYROPHOSPHATE
     Route: 048
     Dates: start: 20160421, end: 20161201
  27. DECADRON [Concomitant]
     Active Substance: DEXAMETHASONE
     Route: 048
     Dates: start: 20160608, end: 20160622
  28. METOCLOPRAMIDE. [Concomitant]
     Active Substance: METOCLOPRAMIDE
     Route: 065
     Dates: start: 20160425, end: 20160627
  29. MAGNESIUM OXIDE. [Concomitant]
     Active Substance: MAGNESIUM OXIDE
     Route: 065
     Dates: start: 20160506
  30. EPINASTINE HYDROCHLORIDE. [Concomitant]
     Active Substance: EPINASTINE HYDROCHLORIDE
     Route: 048
     Dates: start: 20161116, end: 20161213
  31. DECADRON [Concomitant]
     Active Substance: DEXAMETHASONE
     Route: 048
     Dates: start: 20160520, end: 20160520
  32. DECADRON [Concomitant]
     Active Substance: DEXAMETHASONE
     Route: 048
     Dates: start: 20160523, end: 20160523
  33. SYNAGIS [Concomitant]
     Active Substance: PALIVIZUMAB
     Indication: ANTIVIRAL PROPHYLAXIS
     Route: 030
     Dates: start: 201509, end: 201603
  34. NOVOSEVEN [Concomitant]
     Active Substance: COAGULATION FACTOR VIIA RECOMBINANT HUMAN
     Dosage: DOSE AT BLEEING
     Route: 042
     Dates: start: 20160825, end: 20160826
  35. NOVOSEVEN [Concomitant]
     Active Substance: COAGULATION FACTOR VIIA RECOMBINANT HUMAN
     Dosage: ON-DEMAND
     Route: 042
     Dates: start: 20161211, end: 20170107
  36. NOVOSEVEN [Concomitant]
     Active Substance: COAGULATION FACTOR VIIA RECOMBINANT HUMAN
     Dosage: PROPHYLACTIC
     Route: 042
     Dates: start: 20170110, end: 20170125
  37. NOVOSEVEN [Concomitant]
     Active Substance: COAGULATION FACTOR VIIA RECOMBINANT HUMAN
     Dosage: ON-DEMAND
     Route: 042
     Dates: start: 20170205, end: 20170510
  38. ATARAX-P [Concomitant]
     Active Substance: HYDROXYZINE HYDROCHLORIDE
     Dosage: DOSE UNKNOWN
     Route: 042
     Dates: start: 20160523, end: 20160524
  39. HEPARIN SODIUM. [Concomitant]
     Active Substance: HEPARIN SODIUM
     Route: 042
     Dates: start: 20160420, end: 20161217
  40. ALPROLIX [Suspect]
     Active Substance: EFTRENONACOG ALFA
     Dosage: ITI
     Route: 042
     Dates: start: 20170523, end: 20170814
  41. DECADRON [Concomitant]
     Active Substance: DEXAMETHASONE
     Route: 048
     Dates: start: 20160627, end: 20160627
  42. NOVOSEVEN [Concomitant]
     Active Substance: COAGULATION FACTOR VIIA RECOMBINANT HUMAN
     Dosage: PROPHYLACTIC
     Route: 042
     Dates: start: 20161102, end: 20161210
  43. SOL-MELCORT [Concomitant]
     Active Substance: METHYLPREDNISOLONE SODIUM SUCCINATE
     Route: 042
     Dates: start: 20160421, end: 20160502
  44. ANHIBA [Concomitant]
     Active Substance: ACETAMINOPHEN
     Indication: PYREXIA
     Dosage: PRN
     Route: 050
     Dates: start: 20160524

REACTIONS (10)
  - Hypersensitivity [Recovered/Resolved]
  - Staphylococcal infection [Recovered/Resolved]
  - Device related infection [Recovered/Resolved]
  - Off label use [Unknown]
  - Sepsis [Recovered/Resolved]
  - Nephrotic syndrome [Recovered/Resolved]
  - Nephritis [Not Recovered/Not Resolved]
  - Epistaxis [Unknown]
  - Factor IX inhibition [Not Recovered/Not Resolved]
  - Anaphylactic reaction [Recovered/Resolved]

NARRATIVE: CASE EVENT DATE: 20160304
